FAERS Safety Report 4414218-5 (Version None)
Quarter: 2004Q3

REPORT INFORMATION
  Report Type: 
  Country: None (occurrence: None)
  Receive Date: 20040729
  Receipt Date: 20040726
  Transmission Date: 20050211
  Serious: Yes (Death)
  Sender: FDA-Public Use
  Company Number: TPG0T01258067

PATIENT
  Age: 51 Year
  Sex: Male

DRUGS (4)
  1. LEUPROLIDE ACETATE [Suspect]
     Indication: PROSTATE CANCER
     Dosage: 11.25 MG (11.25 MG, 1 IN 3 M)
     Route: 058
     Dates: start: 19980715, end: 19981007
  2. CYPROTERONE ACETATE [Concomitant]
  3. BUDESONIDE [Concomitant]
  4. TERBUTALINE SULFATE [Concomitant]

REACTIONS (2)
  - BRONCHIAL CARCINOMA [None]
  - CONDITION AGGRAVATED [None]
